FAERS Safety Report 24950607 (Version 1)
Quarter: 2025Q1

REPORT INFORMATION
  Report Type: Spontaneous
  Country: DE (occurrence: DE)
  Receive Date: 20250210
  Receipt Date: 20250210
  Transmission Date: 20250409
  Serious: Yes (Death, Other)
  Sender: ABBVIE
  Company Number: DE-ABBVIE-6127825

PATIENT
  Age: 78 Year
  Sex: Female

DRUGS (1)
  1. ELAHERE [Suspect]
     Active Substance: MIRVETUXIMAB SORAVTANSINE-GYNX
     Indication: Ovarian cancer
     Route: 050
     Dates: start: 202501

REACTIONS (3)
  - Subdural haemorrhage [Fatal]
  - Ocular discomfort [Unknown]
  - Headache [Unknown]

NARRATIVE: CASE EVENT DATE: 20250101
